FAERS Safety Report 23945401 (Version 1)
Quarter: 2024Q2

REPORT INFORMATION
  Report Type: Spontaneous
  Country: US (occurrence: US)
  Receive Date: 20240606
  Receipt Date: 20240606
  Transmission Date: 20240715
  Serious: No
  Sender: FDA-Public Use
  Company Number: US-AUROBINDO-AUR-APL-2024-012885

PATIENT
  Age: 80 Year
  Sex: Female

DRUGS (2)
  1. PREDNISONE [Suspect]
     Active Substance: PREDNISONE
     Indication: Arthralgia
     Dosage: UNK (03 TO 04 TABLETS DAILY AS NEEDED)
     Route: 048
  2. PREDNISONE [Suspect]
     Active Substance: PREDNISONE
     Indication: Polymyalgia rheumatica

REACTIONS (4)
  - Pain [Not Recovered/Not Resolved]
  - Product confusion [Unknown]
  - Product substitution issue [Unknown]
  - Drug ineffective [Unknown]
